FAERS Safety Report 9412756 (Version 1)
Quarter: 2013Q3

REPORT INFORMATION
  Report Type: Spontaneous
  Country: FR (occurrence: None)
  Receive Date: 20130716
  Receipt Date: 20130716
  Transmission Date: 20140515
  Serious: Yes (Other)
  Sender: FDA-Public Use
  Company Number: 056-21880-12010988

PATIENT
  Age: 54 Year
  Sex: Male
  Weight: 74 kg

DRUGS (13)
  1. REVLIMID [Suspect]
     Indication: ACUTE MYELOID LEUKAEMIA
     Route: 048
     Dates: start: 20111018, end: 20111031
  2. TIENAM [Suspect]
     Indication: FEBRILE NEUTROPENIA
     Route: 042
     Dates: start: 20111022, end: 20111030
  3. CANCIDAS [Suspect]
     Indication: FEBRILE NEUTROPENIA
     Route: 042
     Dates: start: 20111021, end: 20111030
  4. DAUNORUBICIN (DAUNORUBICIN) (UNKNOWN) [Concomitant]
  5. CYTARABINE (CYTARABINE) (UNKNOWN) [Concomitant]
  6. TAZOCILLINE  (PIP/TAZO) (UNKNOWN) [Concomitant]
  7. CLAFORAN (CEFOTAXIME SODIUM) (UNKNOWN) [Concomitant]
  8. NOXAFIL (POSACONAZOLE) (UNKNOWN) [Concomitant]
  9. PRIMEPERAN (METOCLOPRAMIDE) (10 MILLIGRAM, TABLETS) [Concomitant]
  10. LEXOMIL (BROMAZEPAM) (TABLETS) [Concomitant]
  11. TOPALGIC (TRAMADOL HYDROCHLORIDE) (50 MILLIGRAM, TABLETS) [Concomitant]
  12. BISEPTINE (BISEPTINE) (50 MILLIGRAM, UNKNOWN) [Concomitant]
  13. PARACETAMOL (PARACETAMOL) (UNKNOWN) [Concomitant]

REACTIONS (8)
  - Nephrogenic diabetes insipidus [None]
  - Toxicity to various agents [None]
  - Nausea [None]
  - Diarrhoea [None]
  - Mucosal inflammation [None]
  - Lung infection [None]
  - Pleural effusion [None]
  - Bone marrow failure [None]
